FAERS Safety Report 7761857-X (Version None)
Quarter: 2011Q3

REPORT INFORMATION
  Report Type: 
  Country: None (occurrence: None)
  Receive Date: 20110920
  Receipt Date: 20110915
  Transmission Date: 20111222
  Serious: Yes (Death)
  Sender: FDA-Public Use
  Company Number: US-SANOFI-AVENTIS-2011SA060493

PATIENT
  Age: 82 Year
  Sex: Male

DRUGS (3)
  1. JEVTANA KIT [Suspect]
     Indication: PROSTATE CANCER
     Route: 041
     Dates: start: 20100901, end: 20100901
  2. JEVTANA KIT [Suspect]
     Route: 041
     Dates: start: 20101001, end: 20101001
  3. JEVTANA KIT [Suspect]
     Route: 041
     Dates: start: 20101206, end: 20101206

REACTIONS (1)
  - DEATH [None]
